FAERS Safety Report 24332485 (Version 1)
Quarter: 2024Q3

REPORT INFORMATION
  Report Type: Report from Study
  Country: GB (occurrence: GB)
  Receive Date: 20240918
  Receipt Date: 20240918
  Transmission Date: 20241017
  Serious: Yes (Other)
  Sender: JOHNSON AND JOHNSON
  Company Number: GB-JNJFOC-20240931700

PATIENT
  Age: 6 Decade
  Sex: Female

DRUGS (3)
  1. STELARA [Suspect]
     Active Substance: USTEKINUMAB
     Indication: Crohn^s disease
     Dosage: ON WEEK 8 AS DIRECTED.
     Route: 058
     Dates: start: 20240612
  2. STELARA [Suspect]
     Active Substance: USTEKINUMAB
  3. FOLIC ACID [Concomitant]
     Active Substance: FOLIC ACID

REACTIONS (5)
  - Pneumonia [Unknown]
  - Shock [Unknown]
  - Pertussis [Unknown]
  - Vomiting [Unknown]
  - Malaise [Unknown]
